FAERS Safety Report 13408007 (Version 2)
Quarter: 2017Q2

REPORT INFORMATION
  Report Type: Spontaneous
  Country: US (occurrence: US)
  Receive Date: 20170406
  Receipt Date: 20170418
  Transmission Date: 20170830
  Serious: No
  Sender: FDA-Public Use
  Company Number: US-TEVA-753507ACC

PATIENT
  Age: 54 Year
  Sex: Female

DRUGS (2)
  1. COPAXONE [Suspect]
     Active Substance: GLATIRAMER ACETATE
     Dosage: UNKNOWN STRENGTH
     Route: 065
     Dates: start: 2008
  2. COPAXONE [Suspect]
     Active Substance: GLATIRAMER ACETATE
     Dosage: UNKNOWN STRENGTH

REACTIONS (3)
  - Product use issue [Unknown]
  - Injection site reaction [Unknown]
  - Weight decreased [Unknown]
